FAERS Safety Report 23595237 (Version 1)
Quarter: 2024Q1

REPORT INFORMATION
  Report Type: Other
  Country: DE (occurrence: DE)
  Receive Date: 20240305
  Receipt Date: 20240305
  Transmission Date: 20240410
  Serious: Yes (Congenital Anomaly, Other)
  Sender: FDA-Public Use
  Company Number: DE-MACLEODS PHARMACEUTICALS US LTD-MAC2024046117

PATIENT

DRUGS (2)
  1. EMTRICITABINE\TENOFOVIR DISOPROXIL [Suspect]
     Active Substance: EMTRICITABINE\TENOFOVIR DISOPROXIL
     Indication: Product used for unknown indication
     Dosage: 445 MILLIGRAM, QD(1 COURSE, NOT PRIOR TO CONCEPTION, EXPOSURE DURING SECOND TRIMESTER)
     Route: 064
     Dates: start: 20231114
  2. TIVICAY [Suspect]
     Active Substance: DOLUTEGRAVIR SODIUM
     Indication: Product used for unknown indication
     Dosage: 50 MILLIGRAM, QD (1 COURSE, NOT PRIOR TO CONCEPTION, EXPOSURE DURING SECOND TRIMESTER)
     Route: 064
     Dates: start: 20231114

REACTIONS (3)
  - Trisomy 21 [Unknown]
  - Congenital anomaly [Unknown]
  - Foetal exposure during pregnancy [Unknown]
